FAERS Safety Report 5524595-X (Version None)
Quarter: 2007Q4

REPORT INFORMATION
  Report Type: 
  Country: None (occurrence: None)
  Receive Date: 20071123
  Receipt Date: 20071113
  Transmission Date: 20080405
  Serious: Yes (Hospitalization)
  Sender: FDA-Public Use
  Company Number: TW-BAYER-200716908GDS

PATIENT
  Age: 56 Year
  Sex: Male

DRUGS (6)
  1. SORAFENIB [Suspect]
     Indication: NON-SMALL CELL LUNG CANCER
     Route: 048
     Dates: start: 20070217, end: 20070220
  2. CARBOPLATIN [Suspect]
     Indication: NON-SMALL CELL LUNG CANCER
  3. PACLITAXEL [Suspect]
     Indication: NON-SMALL CELL LUNG CANCER
  4. TAITA NO. 5 [Concomitant]
     Indication: DEHYDRATION
     Route: 042
     Dates: start: 20070224, end: 20070225
  5. SODIUM CHLORIDE 0.9% [Concomitant]
     Indication: DEHYDRATION
     Route: 042
     Dates: start: 20070224, end: 20070225
  6. HALF SALINE 2.5% [Concomitant]
     Indication: DEHYDRATION
     Route: 042
     Dates: start: 20070224, end: 20070225

REACTIONS (1)
  - ILEUS [None]
